FAERS Safety Report 14430607 (Version 1)
Quarter: 2018Q1

REPORT INFORMATION
  Report Type: Spontaneous
  Country: US (occurrence: US)
  Receive Date: 20180123
  Receipt Date: 20180123
  Transmission Date: 20180509
  Serious: Yes (Other)
  Sender: FDA-Public Use
  Company Number: None

PATIENT
  Age: 86 Year
  Sex: Female

DRUGS (7)
  1. IMATINIB [Suspect]
     Active Substance: IMATINIB
     Indication: CHRONIC MYELOID LEUKAEMIA
     Route: 048
     Dates: start: 20171120, end: 20180123
  2. LISINOPRIL. [Concomitant]
     Active Substance: LISINOPRIL
  3. ALLOPURINOL. [Concomitant]
     Active Substance: ALLOPURINOL
  4. GLIPIZIDE. [Concomitant]
     Active Substance: GLIPIZIDE
  5. DIGOXIN. [Concomitant]
     Active Substance: DIGOXIN
  6. SIMVASTATIN. [Concomitant]
     Active Substance: SIMVASTATIN
  7. CARVEDILOL. [Concomitant]
     Active Substance: CARVEDILOL

REACTIONS (1)
  - Disease progression [None]
